FAERS Safety Report 5579365-3 (Version None)
Quarter: 2008Q1

REPORT INFORMATION
  Report Type: 
  Country: None (occurrence: None)
  Receive Date: 20080102
  Receipt Date: 20071219
  Transmission Date: 20080703
  Serious: Yes (Hospitalization)
  Sender: FDA-Public Use
  Company Number: JP-ELI_LILLY_AND_COMPANY-JP200712002584

PATIENT
  Sex: Male
  Weight: 59 kg

DRUGS (8)
  1. GEMZAR [Suspect]
     Indication: BILE DUCT CANCER
     Dosage: 1000 MG/M2, OTHER
     Route: 042
     Dates: start: 20071204
  2. ADALAT [Concomitant]
     Indication: HYPERTENSION
     Dosage: 20 MG, 2/D
     Route: 048
     Dates: start: 19850101
  3. LASIX [Concomitant]
     Indication: CARDIAC FAILURE CONGESTIVE
     Dosage: 20 MG, DAILY (1/D)
     Route: 048
     Dates: start: 19850101
  4. WARFARIN SODIUM [Concomitant]
     Indication: ATRIAL FIBRILLATION
     Dosage: 3.5 MG, DAILY (1/D)
     Route: 048
     Dates: start: 19850101
  5. DIGOXIN [Concomitant]
     Indication: ATRIAL FIBRILLATION
     Dosage: 0.125 MG, DAILY (1/D)
     Route: 048
     Dates: start: 19850101
  6. ALDACTONE [Concomitant]
     Indication: CARDIAC FAILURE CHRONIC
     Dosage: 25 MG, DAILY (1/D)
     Route: 048
     Dates: start: 19850101
  7. ASPIRIN [Concomitant]
     Indication: ATRIAL FIBRILLATION
     Dosage: 100 MG, DAILY (1/D)
     Route: 048
     Dates: start: 19850101
  8. MAGNESIUM OXIDE [Concomitant]
     Indication: CONSTIPATION
     Dosage: 0.5 G, 3/D
     Route: 048
     Dates: start: 19850101

REACTIONS (1)
  - INTESTINAL ISCHAEMIA [None]
